FAERS Safety Report 18367772 (Version 3)
Quarter: 2020Q4

REPORT INFORMATION
  Report Type: Report from Study
  Country: CA (occurrence: CA)
  Receive Date: 20201009
  Receipt Date: 20201014
  Transmission Date: 20210114
  Serious: Yes (Other)
  Sender: FDA-Public Use
  Company Number: CA-JNJFOC-20200416538

PATIENT
  Age: 80 Year
  Sex: Female
  Weight: 50 kg

DRUGS (4)
  1. STELARA [Suspect]
     Active Substance: USTEKINUMAB
     Route: 058
  2. STELARA [Suspect]
     Active Substance: USTEKINUMAB
     Dosage: STELARA PRE-FILLED SYRINGE - ULTRASAFE 90.00 MG/ML
     Route: 058
  3. STELARA [Suspect]
     Active Substance: USTEKINUMAB
     Indication: CROHN^S DISEASE
     Route: 042
     Dates: start: 20200219
  4. STELARA [Suspect]
     Active Substance: USTEKINUMAB
     Dosage: STELARA PRE-FILLED SYRINGE - ULTRASAFE 90.00 MG/ML
     Route: 058

REACTIONS (12)
  - Pruritus [Not Recovered/Not Resolved]
  - Decreased appetite [Unknown]
  - Multiple allergies [Unknown]
  - Abdominal pain [Unknown]
  - Diarrhoea [Not Recovered/Not Resolved]
  - Nasopharyngitis [Unknown]
  - Drug ineffective [Unknown]
  - Pain in extremity [Unknown]
  - Defaecation urgency [Unknown]
  - Intestinal resection [Not Recovered/Not Resolved]
  - Cough [Recovered/Resolved]
  - Eczema [Unknown]

NARRATIVE: CASE EVENT DATE: 2020
